FAERS Safety Report 24466533 (Version 3)
Quarter: 2024Q4

REPORT INFORMATION
  Report Type: Spontaneous
  Country: CA (occurrence: CA)
  Receive Date: 20241018
  Receipt Date: 20241224
  Transmission Date: 20250114
  Serious: Yes (Death, Life-Threatening, Hospitalization, Disabling, Other)
  Sender: PURDUE
  Company Number: CA-PURDUE-USA-2024-0312615

PATIENT
  Age: 44 Year
  Sex: Female

DRUGS (187)
  1. OXYCODONE HYDROCHLORIDE [Suspect]
     Active Substance: OXYCODONE HYDROCHLORIDE
     Indication: Product used for unknown indication
     Dosage: UNK
     Route: 065
  2. TRAMADOL HYDROCHLORIDE [Suspect]
     Active Substance: TRAMADOL HYDROCHLORIDE
     Indication: Product used for unknown indication
     Dosage: UNK
     Route: 065
  3. ACETAMINOPHEN AND CODEINE [Suspect]
     Active Substance: ACETAMINOPHEN\CODEINE PHOSPHATE
     Indication: Rheumatoid arthritis
     Dosage: UNK
     Route: 065
  4. ADALIMUMAB [Suspect]
     Active Substance: ADALIMUMAB
     Indication: Psoriatic arthropathy
     Dosage: UNK
     Route: 065
  5. ADALIMUMAB [Suspect]
     Active Substance: ADALIMUMAB
     Indication: Rheumatoid arthritis
     Dosage: UNK
     Route: 058
  6. ADALIMUMAB [Suspect]
     Active Substance: ADALIMUMAB
     Dosage: UNK
     Route: 048
  7. ADALIMUMAB [Suspect]
     Active Substance: ADALIMUMAB
     Dosage: 40 MILLIGRAM
     Route: 048
  8. ADALIMUMAB [Suspect]
     Active Substance: ADALIMUMAB
     Dosage: 40 MILLIGRAM
     Route: 058
  9. ADALIMUMAB [Suspect]
     Active Substance: ADALIMUMAB
     Dosage: 4 MILLIGRAM
     Route: 058
  10. ADALIMUMAB [Suspect]
     Active Substance: ADALIMUMAB
     Dosage: 400 MILLIGRAM
     Route: 058
  11. ALENDRONATE SODIUM [Suspect]
     Active Substance: ALENDRONATE SODIUM
     Indication: Rheumatoid arthritis
     Dosage: UNK
     Route: 065
  12. ALENDRONATE SODIUM [Suspect]
     Active Substance: ALENDRONATE SODIUM
     Dosage: UNK
     Route: 048
  13. ALENDRONIC ACID [Suspect]
     Active Substance: ALENDRONIC ACID
     Indication: Rheumatoid arthritis
     Dosage: UNK
     Route: 065
  14. ALENDRONIC ACID [Suspect]
     Active Substance: ALENDRONIC ACID
     Dosage: UNK
     Route: 048
  15. ALENDRONIC ACID [Suspect]
     Active Substance: ALENDRONIC ACID
     Dosage: 1 MILLIGRAM
     Route: 048
  16. PREGABALIN [Suspect]
     Active Substance: PREGABALIN
     Indication: Product used for unknown indication
     Dosage: UNK
     Route: 065
  17. APREMILAST [Suspect]
     Active Substance: APREMILAST
     Indication: Product used for unknown indication
     Dosage: UNK
     Route: 048
  18. APREMILAST [Suspect]
     Active Substance: APREMILAST
     Dosage: 3.0 MILLIGRAM, 1 EVERY .5 DAYS
     Route: 048
  19. APREMILAST [Suspect]
     Active Substance: APREMILAST
     Dosage: UNK
     Route: 065
  20. APREMILAST [Suspect]
     Active Substance: APREMILAST
     Dosage: 3.0 MILLIGRAM
     Route: 042
  21. APREMILAST [Suspect]
     Active Substance: APREMILAST
     Dosage: 3.0 MILLIGRAM
     Route: 048
  22. CALCIUM [Suspect]
     Active Substance: CALCIUM
     Indication: Product used for unknown indication
     Dosage: UNK
     Route: 065
  23. CELECOXIB [Suspect]
     Active Substance: CELECOXIB
     Indication: Product used for unknown indication
     Dosage: UNK
     Route: 065
  24. CELECOXIB [Suspect]
     Active Substance: CELECOXIB
     Dosage: 2 DOSAGE FORM,1 EVERY 1 DAYS
     Route: 065
  25. CERTOLIZUMAB PEGOL [Suspect]
     Active Substance: CERTOLIZUMAB PEGOL
     Indication: Rheumatoid arthritis
     Dosage: 1.0 DOSAGE FORM,1 EVERY 1 DAYS
     Route: 058
  26. CERTOLIZUMAB PEGOL [Suspect]
     Active Substance: CERTOLIZUMAB PEGOL
     Dosage: UNK
     Route: 058
  27. CERTOLIZUMAB PEGOL [Suspect]
     Active Substance: CERTOLIZUMAB PEGOL
     Dosage: UNK
     Route: 065
  28. CETIRIZINE HYDROCHLORIDE [Suspect]
     Active Substance: CETIRIZINE HYDROCHLORIDE
     Indication: Rheumatoid arthritis
     Dosage: UNK
     Route: 065
  29. CETIRIZINE HYDROCHLORIDE [Suspect]
     Active Substance: CETIRIZINE HYDROCHLORIDE
     Dosage: UNK
     Route: 048
  30. CETIRIZINE HYDROCHLORIDE [Suspect]
     Active Substance: CETIRIZINE HYDROCHLORIDE
     Dosage: 10.0 MILLIGRAM, 1 EVERY 1 DAYS
     Route: 048
  31. CETIRIZINE HYDROCHLORIDE [Suspect]
     Active Substance: CETIRIZINE HYDROCHLORIDE
     Dosage: 25 MILLIGRAM
     Route: 048
  32. CETIRIZINE HYDROCHLORIDE [Suspect]
     Active Substance: CETIRIZINE HYDROCHLORIDE
     Dosage: 10 MILLIGRAM
     Route: 048
  33. CHLORAPREP [Suspect]
     Active Substance: CHLORHEXIDINE GLUCONATE\ISOPROPYL ALCOHOL
     Indication: Product used for unknown indication
     Dosage: UNK
     Route: 061
  34. CHLORHEXIDINE [Suspect]
     Active Substance: CHLORHEXIDINE
     Indication: Product used for unknown indication
     Dosage: UNK
     Route: 061
  35. CHLORHEXIDINE [Suspect]
     Active Substance: CHLORHEXIDINE
     Dosage: UNK
     Route: 065
  36. CHLORHEXIDINE [Suspect]
     Active Substance: CHLORHEXIDINE
     Dosage: UNK
     Route: 002
  37. CHLORHEXIDINE [Suspect]
     Active Substance: CHLORHEXIDINE
     Dosage: UNK
     Route: 048
  38. CHLORHEXIDINE GLUCONATE\ISOPROPYL ALCOHOL [Suspect]
     Active Substance: CHLORHEXIDINE GLUCONATE\ISOPROPYL ALCOHOL
     Indication: Product used for unknown indication
     Dosage: UNK
     Route: 061
  39. CHLORHEXIDINE GLUCONATE\ISOPROPYL ALCOHOL [Suspect]
     Active Substance: CHLORHEXIDINE GLUCONATE\ISOPROPYL ALCOHOL
     Dosage: UNK
     Route: 002
  40. CHLORHEXIDINE GLUCONATE\ISOPROPYL ALCOHOL [Suspect]
     Active Substance: CHLORHEXIDINE GLUCONATE\ISOPROPYL ALCOHOL
     Dosage: UNK
     Route: 048
  41. CORTISONE ACETATE [Suspect]
     Active Substance: CORTISONE ACETATE
     Indication: Rheumatoid arthritis
     Dosage: UNK
     Route: 065
  42. CORTISONE ACETATE [Suspect]
     Active Substance: CORTISONE ACETATE
     Dosage: UNK
     Route: 061
  43. CORTISONE ACETATE [Suspect]
     Active Substance: CORTISONE ACETATE
     Dosage: UNK
     Route: 048
  44. CORTISONE ACETATE [Suspect]
     Active Substance: CORTISONE ACETATE
     Dosage: UNK
     Route: 003
  45. CORTISONE ACETATE [Suspect]
     Active Substance: CORTISONE ACETATE
     Dosage: UNK
     Route: 058
  46. CORTISONE ACETATE [Suspect]
     Active Substance: CORTISONE ACETATE
     Dosage: 25 MILLIGRAM
     Route: 065
  47. CORTISONE ACETATE [Suspect]
     Active Substance: CORTISONE ACETATE
     Indication: Rheumatoid arthritis
     Dosage: 25 MILLIGRAM
     Route: 003
  48. CORTISONE ACETATE [Suspect]
     Active Substance: CORTISONE ACETATE
     Dosage: 25 MILLIGRAM
     Route: 048
  49. CORTISONE ACETATE [Suspect]
     Active Substance: CORTISONE ACETATE
     Dosage: 25 MILLIGRAM
     Route: 061
  50. COSENTYX [Suspect]
     Active Substance: SECUKINUMAB
     Indication: Rheumatoid arthritis
     Dosage: UNK
     Route: 065
  51. COSENTYX [Suspect]
     Active Substance: SECUKINUMAB
     Indication: Psoriatic arthropathy
     Dosage: UNK
     Route: 005
  52. DESOXIMETASONE [Suspect]
     Active Substance: DESOXIMETASONE
     Indication: Rheumatoid arthritis
     Dosage: UNK
     Route: 065
  53. DESOXIMETASONE [Suspect]
     Active Substance: DESOXIMETASONE
     Dosage: UNK
     Route: 061
  54. DESOXIMETASONE [Suspect]
     Active Substance: DESOXIMETASONE
     Dosage: UNK
     Route: 048
  55. DESOXIMETASONE [Suspect]
     Active Substance: DESOXIMETASONE
     Dosage: UNK
     Route: 003
  56. DESOXIMETASONE [Suspect]
     Active Substance: DESOXIMETASONE
     Dosage: UNK
     Route: 058
  57. DICLOFENAC DIETHYLAMINE [Suspect]
     Active Substance: DICLOFENAC DIETHYLAMINE
     Indication: Product used for unknown indication
     Dosage: UNK
     Route: 065
  58. DICLOFENAC POTASSIUM [Suspect]
     Active Substance: DICLOFENAC POTASSIUM
     Indication: Product used for unknown indication
     Dosage: UNK
     Route: 065
  59. DICLOFENAC SODIUM [Suspect]
     Active Substance: DICLOFENAC SODIUM
     Indication: Product used for unknown indication
     Dosage: UNK
     Route: 065
  60. DICLOFENAC SODIUM [Suspect]
     Active Substance: DICLOFENAC SODIUM
     Dosage: UNK
     Route: 058
  61. DICLOFENAC SODIUM [Suspect]
     Active Substance: DICLOFENAC SODIUM
     Dosage: UNK
     Route: 048
  62. DICLOFENAC SODIUM [Suspect]
     Active Substance: DICLOFENAC SODIUM
     Dosage: 50.0 MILLIGRAM,1 EVERY 1 DAYS
     Route: 058
  63. DICLOFENAC SODIUM [Suspect]
     Active Substance: DICLOFENAC SODIUM
     Dosage: UNK
     Route: 047
  64. DOXYCYCLINE HYCLATE [Suspect]
     Active Substance: DOXYCYCLINE HYCLATE
     Indication: Product used for unknown indication
     Dosage: UNK
     Route: 065
  65. DOXYCYCLINE HYCLATE [Suspect]
     Active Substance: DOXYCYCLINE HYCLATE
     Dosage: 40 MILLIGRAM
     Route: 065
  66. ENBREL [Suspect]
     Active Substance: ETANERCEPT
     Indication: Rheumatoid arthritis
     Dosage: UNK
     Route: 058
  67. ENBREL [Suspect]
     Active Substance: ETANERCEPT
     Indication: Psoriatic arthropathy
     Dosage: 20.0 MILLIGRAM, 1 EVERY 1 WEEKS
     Route: 058
  68. ENBREL [Suspect]
     Active Substance: ETANERCEPT
     Dosage: 50.0 MILLIGRAM, 1 EVERY 1 WEEKS
     Route: 058
  69. ERELZI [Suspect]
     Active Substance: ETANERCEPT-SZZS
     Indication: Rheumatoid arthritis
     Dosage: UNK
     Route: 065
  70. ERELZI [Suspect]
     Active Substance: ETANERCEPT-SZZS
     Dosage: 50.0 MILLIGRAM, 1 EVERY 1 WEEKS
     Route: 058
  71. FLUMETHASONE PIVALATE [Suspect]
     Active Substance: FLUMETHASONE PIVALATE
     Indication: Rheumatoid arthritis
     Dosage: UNK
     Route: 065
  72. FLUMETHASONE PIVALATE [Suspect]
     Active Substance: FLUMETHASONE PIVALATE
     Dosage: UNK
     Route: 058
  73. FOLIC ACID [Suspect]
     Active Substance: FOLIC ACID
     Indication: Rheumatoid arthritis
     Dosage: UNK
     Route: 065
  74. FOLIC ACID [Suspect]
     Active Substance: FOLIC ACID
     Dosage: 5.0 MILLIGRAM, 1 EVERY 1 DAYS
     Route: 048
  75. FOLIC ACID [Suspect]
     Active Substance: FOLIC ACID
     Dosage: UNK
     Route: 058
  76. FOLIC ACID [Suspect]
     Active Substance: FOLIC ACID
     Dosage: UNK
     Route: 048
  77. FOLIC ACID [Suspect]
     Active Substance: FOLIC ACID
     Dosage: 1 MILLIGRAM
     Route: 058
  78. FOLIC ACID [Suspect]
     Active Substance: FOLIC ACID
     Dosage: 25 MILLIGRAM
     Route: 065
  79. FOLIC ACID [Suspect]
     Active Substance: FOLIC ACID
     Dosage: 500 MILLIGRAM
     Route: 050
  80. FOLIC ACID [Suspect]
     Active Substance: FOLIC ACID
     Dosage: 15 MILLIGRAM
     Route: 048
  81. FOLIC ACID [Suspect]
     Active Substance: FOLIC ACID
     Dosage: 3 MILLIGRAM
     Route: 065
  82. FOLIC ACID [Suspect]
     Active Substance: FOLIC ACID
     Dosage: 0.5 MILLIGRAM
     Route: 065
  83. GOLIMUMAB [Suspect]
     Active Substance: GOLIMUMAB
     Indication: Rheumatoid arthritis
     Dosage: UNK
     Route: 065
  84. GOLIMUMAB [Suspect]
     Active Substance: GOLIMUMAB
     Indication: Psoriatic arthropathy
     Dosage: UNK
     Route: 058
  85. GOLIMUMAB [Suspect]
     Active Substance: GOLIMUMAB
     Dosage: UNK
     Route: 052
  86. GOLIMUMAB [Suspect]
     Active Substance: GOLIMUMAB
     Dosage: UNK
     Route: 042
  87. GOLIMUMAB [Suspect]
     Active Substance: GOLIMUMAB
     Dosage: 50 MILLIGRAM
     Route: 058
  88. HYDROCORTISONE [Suspect]
     Active Substance: HYDROCORTISONE
     Indication: Rheumatoid arthritis
     Dosage: UNK
     Route: 061
  89. HYDROCORTISONE [Suspect]
     Active Substance: HYDROCORTISONE
     Dosage: UNK
     Route: 003
  90. HYDROCORTISONE [Suspect]
     Active Substance: HYDROCORTISONE
     Dosage: UNK
     Route: 058
  91. HYDROCORTISONE [Suspect]
     Active Substance: HYDROCORTISONE
     Dosage: UNK
     Route: 048
  92. HYDROCORTISONE [Suspect]
     Active Substance: HYDROCORTISONE
     Dosage: UNK
     Route: 065
  93. HYDROXYCHLOROQUINE [Suspect]
     Active Substance: HYDROXYCHLOROQUINE
     Indication: Rheumatoid arthritis
     Dosage: 400.0 MILLIGRAM, 1 EVERY 1 DAYS
     Route: 065
  94. HYDROXYCHLOROQUINE [Suspect]
     Active Substance: HYDROXYCHLOROQUINE
     Indication: Systemic lupus erythematosus
     Dosage: 4000.0 MILLIGRAM, 1 EVERY 1 DAYS
     Route: 058
  95. HYDROXYCHLOROQUINE [Suspect]
     Active Substance: HYDROXYCHLOROQUINE
     Dosage: 40.0 MILLIGRAM, 1 EVERY 1 DAYS
     Route: 065
  96. HYDROXYCHLOROQUINE [Suspect]
     Active Substance: HYDROXYCHLOROQUINE
     Dosage: UNK
     Route: 048
  97. HYDROXYCHLOROQUINE [Suspect]
     Active Substance: HYDROXYCHLOROQUINE
     Dosage: 5 MILLIGRAM
     Route: 048
  98. INFLIXIMAB [Suspect]
     Active Substance: INFLIXIMAB
     Indication: Rheumatoid arthritis
     Dosage: UNK
     Route: 065
  99. INFLIXIMAB [Suspect]
     Active Substance: INFLIXIMAB
     Dosage: UNK
     Route: 042
  100. INFLIXIMAB [Suspect]
     Active Substance: INFLIXIMAB
     Dosage: 500 MILLIGRAM
     Route: 042
  101. ISOPROPYL ALCOHOL [Suspect]
     Active Substance: ISOPROPYL ALCOHOL
     Indication: Product used for unknown indication
     Dosage: UNK
     Route: 061
  102. LEFLUNOMIDE [Suspect]
     Active Substance: LEFLUNOMIDE
     Indication: Rheumatoid arthritis
     Dosage: 20.0 MILLIGRAM, 1 EVERY 1 DAYS
     Route: 048
  103. LEFLUNOMIDE [Suspect]
     Active Substance: LEFLUNOMIDE
     Dosage: 20 MILLIGRAM
     Route: 048
  104. LEFLUNOMIDE [Suspect]
     Active Substance: LEFLUNOMIDE
     Dosage: UNK
     Route: 048
  105. LEFLUNOMIDE [Suspect]
     Active Substance: LEFLUNOMIDE
     Dosage: UNK
     Route: 065
  106. LYRICA [Suspect]
     Active Substance: PREGABALIN
     Indication: Product used for unknown indication
     Dosage: UNK
     Route: 065
  107. METHOTREXATE [Suspect]
     Active Substance: METHOTREXATE
     Indication: Rheumatoid arthritis
     Dosage: UNK
     Route: 058
  108. METHOTREXATE [Suspect]
     Active Substance: METHOTREXATE
     Dosage: UNK
     Route: 048
  109. METHOTREXATE [Suspect]
     Active Substance: METHOTREXATE
     Dosage: UNK
     Route: 065
  110. METHOTREXATE [Suspect]
     Active Substance: METHOTREXATE
     Dosage: UNK
     Route: 013
  111. METHOTREXATE [Suspect]
     Active Substance: METHOTREXATE
     Dosage: 2.0 GRAM, 1 EVERY 1 DAYS
     Route: 048
  112. METHOTREXATE [Suspect]
     Active Substance: METHOTREXATE
     Dosage: 500.0 MILLIGRAM, 1 EVERY .5 DAYS
     Route: 065
  113. METHOTREXATE [Suspect]
     Active Substance: METHOTREXATE
     Dosage: 20.0 MILLIGRAM, 1 EVERY 1 WEEKS
     Route: 058
  114. METHOTREXATE [Suspect]
     Active Substance: METHOTREXATE
     Dosage: 20.0 MILLIGRAM, 1 EVERY 1 DAYS
     Route: 048
  115. METHOTREXATE [Suspect]
     Active Substance: METHOTREXATE
     Dosage: 20.0 MILLIGRAM, 1 EVERY 1 DAYS
     Route: 058
  116. METHOTREXATE [Suspect]
     Active Substance: METHOTREXATE
     Dosage: 2.0 DOSAGE FORM, 1 EVERY 1 DAYS
     Route: 048
  117. METHOTREXATE [Suspect]
     Active Substance: METHOTREXATE
     Dosage: 25.0 MILLIGRAM, 1 EVERY 1 WEEKS
     Route: 038
  118. METHOTREXATE [Suspect]
     Active Substance: METHOTREXATE
     Dosage: 25.0 MILLIGRAM, 1 EVERY 1 WEEKS
     Route: 048
  119. METHOTREXATE [Suspect]
     Active Substance: METHOTREXATE
     Dosage: 25.0 MILLIGRAM, 1 EVERY 1 DAYS
     Route: 065
  120. METHOTREXATE [Suspect]
     Active Substance: METHOTREXATE
     Dosage: 25.0 MILLIGRAM, 1 EVERY 1 DAYS
     Route: 058
  121. METHOTREXATE [Suspect]
     Active Substance: METHOTREXATE
     Dosage: 15.0 MILLIGRAM, 1 EVERY 1 DAYS
     Route: 048
  122. MYCOPHENOLATE MOFETIL [Suspect]
     Active Substance: MYCOPHENOLATE MOFETIL
     Indication: Product used for unknown indication
     Dosage: UNK
     Route: 065
  123. NAPROXEN SODIUM [Suspect]
     Active Substance: NAPROXEN SODIUM
     Indication: Rheumatoid arthritis
     Dosage: UNK
     Route: 065
  124. NAPROXEN SODIUM [Suspect]
     Active Substance: NAPROXEN SODIUM
     Dosage: 500.0 MILLIGRAM, 1 EVERY .5 DAYS
     Route: 065
  125. NEOMYCIN [Suspect]
     Active Substance: NEOMYCIN
     Indication: Product used for unknown indication
     Dosage: UNK
     Route: 049
  126. ORENCIA [Suspect]
     Active Substance: ABATACEPT
     Indication: Rheumatoid arthritis
     Dosage: UNK
     Route: 042
  127. ORENCIA [Suspect]
     Active Substance: ABATACEPT
     Dosage: UNK
     Route: 058
  128. ORENCIA [Suspect]
     Active Substance: ABATACEPT
     Dosage: UNK
     Route: 065
  129. PANTOPRAZOLE SODIUM [Suspect]
     Active Substance: PANTOPRAZOLE SODIUM
     Indication: Product used for unknown indication
     Dosage: UNK
     Route: 065
  130. OXYCODONE TEREPHTHALATE [Suspect]
     Active Substance: OXYCODONE TEREPHTHALATE
     Indication: Product used for unknown indication
     Dosage: UNK
     Route: 065
  131. OXYCODONE TEREPHTHALATE [Suspect]
     Active Substance: OXYCODONE TEREPHTHALATE
     Dosage: UNK
     Route: 016
  132. PHTHALYLSULFATHIAZOLE [Suspect]
     Active Substance: PHTHALYLSULFATHIAZOLE
     Indication: Rheumatoid arthritis
     Dosage: UNK
     Route: 065
  133. PHTHALYLSULFATHIAZOLE [Suspect]
     Active Substance: PHTHALYLSULFATHIAZOLE
     Dosage: UNK
     Route: 048
  134. PHTHALYLSULFATHIAZOLE [Suspect]
     Active Substance: PHTHALYLSULFATHIAZOLE
     Dosage: 1000.0 MILLIGRAM,1 EVERY .5 DAYS
     Route: 048
  135. PHTHALYLSULFATHIAZOLE [Suspect]
     Active Substance: PHTHALYLSULFATHIAZOLE
     Dosage: UNK
     Route: 016
  136. PHTHALYLSULFATHIAZOLE [Suspect]
     Active Substance: PHTHALYLSULFATHIAZOLE
     Dosage: UNK
     Route: 042
  137. PREDNISONE [Suspect]
     Active Substance: PREDNISONE
     Indication: Rheumatoid arthritis
     Dosage: UNK
     Route: 065
  138. PREDNISONE [Suspect]
     Active Substance: PREDNISONE
     Indication: Psoriatic arthropathy
     Dosage: UNK
     Route: 048
  139. PREDNISONE [Suspect]
     Active Substance: PREDNISONE
     Indication: Condition aggravated
     Dosage: 5 MILLIGRAM
     Route: 048
  140. PREDNISONE [Suspect]
     Active Substance: PREDNISONE
     Dosage: 1 MILLIGRAM
     Route: 065
  141. PREDNISONE [Suspect]
     Active Substance: PREDNISONE
     Dosage: 10 MILLIGRAM
     Route: 048
  142. PREDNISONE [Suspect]
     Active Substance: PREDNISONE
     Dosage: 40 MILLIGRAM
     Route: 048
  143. PREDNISONE [Suspect]
     Active Substance: PREDNISONE
     Dosage: 5 MILLIGRAM
     Route: 065
  144. PREDNISONE [Suspect]
     Active Substance: PREDNISONE
     Dosage: 7.5 MILLIGRAM
     Route: 048
  145. PSEUDOEPHEDRINE [Suspect]
     Active Substance: PSEUDOEPHEDRINE
     Indication: Product used for unknown indication
     Dosage: UNK
     Route: 065
  146. PSEUDOEPHEDRINE HYDROCHLORIDE\TRIPROLIDINE HYDROCHLORIDE [Suspect]
     Active Substance: PSEUDOEPHEDRINE HYDROCHLORIDE\TRIPROLIDINE HYDROCHLORIDE
     Indication: Rheumatoid arthritis
     Dosage: UNK
     Route: 065
  147. CETIRIZINE HYDROCHLORIDE\PSEUDOEPHEDRINE HYDROCHLORIDE [Suspect]
     Active Substance: CETIRIZINE HYDROCHLORIDE\PSEUDOEPHEDRINE HYDROCHLORIDE
     Indication: Rheumatoid arthritis
     Dosage: UNK
     Route: 065
  148. CETIRIZINE HYDROCHLORIDE\PSEUDOEPHEDRINE HYDROCHLORIDE [Suspect]
     Active Substance: CETIRIZINE HYDROCHLORIDE\PSEUDOEPHEDRINE HYDROCHLORIDE
     Dosage: UNK
     Route: 048
  149. CETIRIZINE HYDROCHLORIDE\PSEUDOEPHEDRINE HYDROCHLORIDE [Suspect]
     Active Substance: CETIRIZINE HYDROCHLORIDE\PSEUDOEPHEDRINE HYDROCHLORIDE
     Dosage: 10 MILLIGRAM
     Route: 048
  150. CETIRIZINE HYDROCHLORIDE\PSEUDOEPHEDRINE HYDROCHLORIDE [Suspect]
     Active Substance: CETIRIZINE HYDROCHLORIDE\PSEUDOEPHEDRINE HYDROCHLORIDE
     Dosage: 25 MILLIGRAM
     Route: 065
  151. RITUXIMAB [Suspect]
     Active Substance: RITUXIMAB
     Indication: Rheumatoid arthritis
     Dosage: UNK
     Route: 042
  152. RITUXIMAB [Suspect]
     Active Substance: RITUXIMAB
     Dosage: UNK
     Route: 058
  153. SULFAMETHOXAZOLE [Suspect]
     Active Substance: SULFAMETHOXAZOLE
     Indication: Product used for unknown indication
     Dosage: UNK
     Route: 065
  154. SULFAMETHOXAZOLE\TRIMETHOPRIM [Suspect]
     Active Substance: SULFAMETHOXAZOLE\TRIMETHOPRIM
     Indication: Product used for unknown indication
     Dosage: UNK
     Route: 065
  155. SULFASALAZINE [Suspect]
     Active Substance: SULFASALAZINE
     Indication: Rheumatoid arthritis
     Dosage: UNK
     Route: 065
  156. SULFASALAZINE [Suspect]
     Active Substance: SULFASALAZINE
     Dosage: UNK
     Route: 048
  157. SULFASALAZINE [Suspect]
     Active Substance: SULFASALAZINE
     Dosage: 1.0 GRAM, 1 EVERY .5 DAYS
     Route: 065
  158. SULFASALAZINE [Suspect]
     Active Substance: SULFASALAZINE
     Dosage: 500.0 MILLIGRAM, 1 EVERY 1 DAYS
     Route: 048
  159. SULFASALAZINE [Suspect]
     Active Substance: SULFASALAZINE
     Dosage: 1.0 GRAM, 1 EVERY 1 DAYS
     Route: 065
  160. SULFASALAZINE [Suspect]
     Active Substance: SULFASALAZINE
     Dosage: 1000 MILLIGRAM,1 EVERY .5 DAYS
     Route: 048
  161. SULFASALAZINE [Suspect]
     Active Substance: SULFASALAZINE
     Dosage: 1.0 GRAM, 1 EVERY 1 DAYS
     Route: 048
  162. SULFASALAZINE [Suspect]
     Active Substance: SULFASALAZINE
     Dosage: 4000 MILLIGRAM
     Route: 048
  163. SULFASALAZINE [Suspect]
     Active Substance: SULFASALAZINE
     Dosage: 1 GRAM
     Route: 048
  164. SULFASALAZINE [Suspect]
     Active Substance: SULFASALAZINE
     Dosage: 500 MILLIGRAM
     Route: 048
  165. SULFASALAZINE [Suspect]
     Active Substance: SULFASALAZINE
     Dosage: 1000 MILLIGRAM
     Route: 048
  166. SULFASALAZINE [Suspect]
     Active Substance: SULFASALAZINE
     Dosage: 2000 MILLIGRAM
     Route: 048
  167. TOCILIZUMAB [Suspect]
     Active Substance: TOCILIZUMAB
     Indication: Rheumatoid arthritis
     Dosage: UNK
     Route: 058
  168. TOCILIZUMAB [Suspect]
     Active Substance: TOCILIZUMAB
     Dosage: UNK
     Route: 065
  169. TOCILIZUMAB [Suspect]
     Active Substance: TOCILIZUMAB
     Dosage: 3011 MILLIGRAM
     Route: 042
  170. TOCILIZUMAB [Suspect]
     Active Substance: TOCILIZUMAB
     Dosage: 752 MILLIGRAM
     Route: 042
  171. TOCILIZUMAB [Suspect]
     Active Substance: TOCILIZUMAB
     Dosage: 3011.2 MILLIGRAM
     Route: 042
  172. TOCILIZUMAB [Suspect]
     Active Substance: TOCILIZUMAB
     Dosage: 728 MILLIGRAM
     Route: 042
  173. TOCILIZUMAB [Suspect]
     Active Substance: TOCILIZUMAB
     Dosage: 2912 MILLIGRAM
     Route: 042
  174. TOCILIZUMAB [Suspect]
     Active Substance: TOCILIZUMAB
     Dosage: 752.8 MILLIGRAM
     Route: 042
  175. TOCILIZUMAB [Suspect]
     Active Substance: TOCILIZUMAB
     Dosage: 1 DOSAGE FORM
     Route: 042
  176. TOFACITINIB CITRATE [Suspect]
     Active Substance: TOFACITINIB CITRATE
     Indication: Rheumatoid arthritis
     Dosage: UNK
     Route: 065
  177. TOFACITINIB CITRATE [Suspect]
     Active Substance: TOFACITINIB CITRATE
     Indication: Psoriatic arthropathy
     Dosage: 5.0 MILLIGRAM, 1 EVERY 1 WEEKS
     Route: 048
  178. TOFACITINIB CITRATE [Suspect]
     Active Substance: TOFACITINIB CITRATE
     Dosage: UNK
     Route: 048
  179. TRIAMCINOLONE ACETONIDE [Suspect]
     Active Substance: TRIAMCINOLONE ACETONIDE
     Indication: Rheumatoid arthritis
     Dosage: UNK
     Route: 013
  180. TRIAMCINOLONE ACETONIDE [Suspect]
     Active Substance: TRIAMCINOLONE ACETONIDE
     Dosage: UNK
     Route: 014
  181. USTEKINUMAB [Suspect]
     Active Substance: USTEKINUMAB
     Indication: Psoriatic arthropathy
     Dosage: UNK
     Route: 065
  182. USTEKINUMAB [Suspect]
     Active Substance: USTEKINUMAB
     Indication: Product used for unknown indication
     Dosage: UNK
     Route: 058
  183. VITAMIN C [Suspect]
     Active Substance: ASCORBIC ACID
     Indication: Product used for unknown indication
     Dosage: UNK
     Route: 065
  184. VITAMIN C [Suspect]
     Active Substance: ASCORBIC ACID
     Dosage: UNK
     Route: 016
  185. VITAMIN D3 [Suspect]
     Active Substance: CHOLECALCIFEROL
     Indication: Product used for unknown indication
     Dosage: UNK
     Route: 065
  186. DIETARY SUPPLEMENT\MINERALS\VITAMINS [Suspect]
     Active Substance: DIETARY SUPPLEMENT\MINERALS\VITAMINS
     Indication: Product used for unknown indication
     Dosage: UNK
     Route: 065
  187. COSENTYX [Concomitant]
     Active Substance: SECUKINUMAB
     Indication: Product used for unknown indication
     Dosage: UNK
     Route: 065

REACTIONS (91)
  - C-reactive protein [Fatal]
  - Dry mouth [Fatal]
  - Duodenal ulcer perforation [Fatal]
  - Facet joint syndrome [Fatal]
  - Fatigue [Fatal]
  - Fibromyalgia [Fatal]
  - Folliculitis [Fatal]
  - General physical health deterioration [Fatal]
  - Glossodynia [Fatal]
  - Hand deformity [Fatal]
  - Helicobacter infection [Fatal]
  - Hepatic enzyme increased [Fatal]
  - Hypersensitivity [Fatal]
  - Hypertension [Fatal]
  - Hypoaesthesia [Fatal]
  - Ill-defined disorder [Fatal]
  - Impaired healing [Fatal]
  - Infection [Fatal]
  - Inflammation [Fatal]
  - Infusion related reaction [Fatal]
  - Injury [Fatal]
  - Insomnia [Fatal]
  - Irritable bowel syndrome [Fatal]
  - Joint range of motion decreased [Fatal]
  - Joint swelling [Fatal]
  - Lip dry [Fatal]
  - Liver disorder [Fatal]
  - Malaise [Fatal]
  - Mobility decreased [Fatal]
  - Off label use [Fatal]
  - Pruritus [Fatal]
  - Psoriatic arthropathy [Fatal]
  - Pyrexia [Fatal]
  - Rash [Fatal]
  - Rheumatic fever [Fatal]
  - Rheumatoid arthritis [Fatal]
  - Rheumatoid factor positive [Fatal]
  - Road traffic accident [Fatal]
  - Sciatica [Fatal]
  - Sinusitis [Fatal]
  - Sleep disorder [Fatal]
  - Sleep disorder due to general medical condition, insomnia type [Fatal]
  - Stomatitis [Fatal]
  - Swelling [Fatal]
  - Swollen joint count increased [Fatal]
  - Synovitis [Fatal]
  - Systemic lupus erythematosus [Fatal]
  - Type 2 diabetes mellitus [Fatal]
  - Urticaria [Fatal]
  - Vomiting [Fatal]
  - Weight increased [Fatal]
  - Wheezing [Fatal]
  - Wound [Fatal]
  - Abdominal discomfort [Fatal]
  - Abdominal pain upper [Fatal]
  - Anti-cyclic citrullinated peptide antibody positive [Fatal]
  - Anxiety [Fatal]
  - Arthralgia [Fatal]
  - Arthropathy [Fatal]
  - Asthenia [Fatal]
  - Asthma [Fatal]
  - Autoimmune disorder [Fatal]
  - Blister [Fatal]
  - Blood cholesterol increased [Fatal]
  - C-reactive protein abnormal [Fatal]
  - Chest pain [Fatal]
  - Confusional state [Fatal]
  - Contusion [Fatal]
  - Decreased appetite [Fatal]
  - Deep vein thrombosis postoperative [Fatal]
  - Diarrhoea [Fatal]
  - Discomfort [Fatal]
  - Drug hypersensitivity [Fatal]
  - Gait inability [Fatal]
  - Gastrointestinal disorder [Fatal]
  - Headache [Fatal]
  - Hip arthroplasty [Fatal]
  - Liver injury [Fatal]
  - Lower limb fracture [Fatal]
  - Lower respiratory tract infection [Fatal]
  - Lung disorder [Fatal]
  - Maternal exposure during pregnancy [Fatal]
  - Muscle injury [Fatal]
  - Musculoskeletal pain [Fatal]
  - Musculoskeletal stiffness [Fatal]
  - Night sweats [Fatal]
  - Osteoarthritis [Fatal]
  - Pain [Fatal]
  - Pemphigus [Fatal]
  - Pericarditis [Fatal]
  - Peripheral swelling [Fatal]
